FAERS Safety Report 15351408 (Version 1)
Quarter: 2018Q3

REPORT INFORMATION
  Report Type: Spontaneous
  Country: US (occurrence: US)
  Receive Date: 20180829
  Receipt Date: 20180829
  Transmission Date: 20181010
  Serious: Yes (Other)
  Sender: FDA-Public Use
  Company Number: None

PATIENT
  Age: 57 Year
  Sex: Female
  Weight: 191.25 kg

DRUGS (11)
  1. CLARITIN [Concomitant]
     Active Substance: LORATADINE
  2. DULOXETINE. [Concomitant]
     Active Substance: DULOXETINE
  3. IBRANCE [Suspect]
     Active Substance: PALBOCICLIB
     Indication: BREAST CANCER
     Route: 048
     Dates: start: 20170119
  4. CRESTOR [Concomitant]
     Active Substance: ROSUVASTATIN CALCIUM
  5. METOPROLOL. [Concomitant]
     Active Substance: METOPROLOL
  6. VENTOLIN [Concomitant]
     Active Substance: ALBUTEROL SULFATE
  7. VICTOZA [Concomitant]
     Active Substance: LIRAGLUTIDE
  8. RANITIDINE150 [Concomitant]
  9. VALSARTAN. [Concomitant]
     Active Substance: VALSARTAN
  10. AMLODIPINE [Concomitant]
     Active Substance: AMLODIPINE BESYLATE
  11. HYDROCODONE/APAP 5?325 [Concomitant]

REACTIONS (1)
  - Cellulitis [None]

NARRATIVE: CASE EVENT DATE: 20180829
